FAERS Safety Report 13844455 (Version 1)
Quarter: 2017Q3

REPORT INFORMATION
  Report Type: Spontaneous
  Country: DE (occurrence: DE)
  Receive Date: 20170808
  Receipt Date: 20170808
  Transmission Date: 20171127
  Serious: Yes (Hospitalization, Other)
  Sender: FDA-Public Use
  Company Number: DE-009507513-1708DEU002286

PATIENT
  Age: 59 Year
  Sex: Female

DRUGS (1)
  1. INTERFERON ALFA-2B [Suspect]
     Active Substance: INTERFERON ALFA-2B
     Indication: MALIGNANT MELANOMA STAGE II
     Dosage: UNK

REACTIONS (1)
  - Type 1 diabetes mellitus [Not Recovered/Not Resolved]
